FAERS Safety Report 8600153-5 (Version None)
Quarter: 2012Q3

REPORT INFORMATION
  Report Type: 
  Country: None (occurrence: None)
  Receive Date: 20120817
  Receipt Date: 20120806
  Transmission Date: 20120928
  Serious: Yes (Hospitalization, Other)
  Sender: FDA-Public Use
  Company Number: DE-BIOGENIDEC-2010BI026170

PATIENT
  Age: 44 Year
  Sex: Female

DRUGS (1)
  1. TYSABRI [Suspect]
     Indication: RELAPSING-REMITTING MULTIPLE SCLEROSIS
     Route: 042
     Dates: start: 20080501, end: 20100601

REACTIONS (12)
  - GLIOSIS [None]
  - GAIT DISTURBANCE [None]
  - PROGRESSIVE MULTIFOCAL LEUKOENCEPHALOPATHY [None]
  - MEMORY IMPAIRMENT [None]
  - ACTIVITIES OF DAILY LIVING IMPAIRED [None]
  - PERSECUTORY DELUSION [None]
  - COGNITIVE DISORDER [None]
  - IMMUNE RECONSTITUTION SYNDROME [None]
  - FATIGUE [None]
  - QUALITY OF LIFE DECREASED [None]
  - GRAND MAL CONVULSION [None]
  - POLLAKIURIA [None]
